FAERS Safety Report 11528487 (Version 4)
Quarter: 2018Q4

REPORT INFORMATION
  Report Type: Spontaneous
  Country: US (occurrence: US)
  Receive Date: 20150921
  Receipt Date: 20181207
  Transmission Date: 20190204
  Serious: No
  Sender: FDA-Public Use
  Company Number: US-009507513-1509USA009996

PATIENT
  Age: 25 Year
  Sex: Female

DRUGS (2)
  1. IMPLANON [Suspect]
     Active Substance: ETONOGESTREL
     Dosage: UNK
     Route: 059
     Dates: start: 2008, end: 2011
  2. IMPLANON [Suspect]
     Active Substance: ETONOGESTREL
     Dosage: UNK, LEFT ARM
     Dates: start: 201109

REACTIONS (4)
  - Incorrect product administration duration [Unknown]
  - Product dose omission [Unknown]
  - Amenorrhoea [Unknown]
  - Complication associated with device [Not Recovered/Not Resolved]

NARRATIVE: CASE EVENT DATE: 2008
